FAERS Safety Report 23321625 (Version 1)
Quarter: 2023Q4

REPORT INFORMATION
  Report Type: Spontaneous
  Country: US (occurrence: US)
  Receive Date: 20231220
  Receipt Date: 20231220
  Transmission Date: 20240110
  Serious: No
  Sender: FDA-Public Use
  Company Number: US-USAntibiotics-000224

PATIENT

DRUGS (2)
  1. AUGMENTIN [Suspect]
     Active Substance: AMOXICILLIN\CLAVULANATE POTASSIUM
     Indication: Product used for unknown indication
  2. IBRANCE [Concomitant]
     Active Substance: PALBOCICLIB
     Indication: Breast cancer
     Dosage: TAKE 1 CAPSULE (100 MG TOTAL) BY MOUTH DAILY WITH BREAKFAST FOR 3 WEEKS ON AND 1 WEEK OFF
     Route: 048

REACTIONS (1)
  - Abdominal discomfort [Unknown]
